FAERS Safety Report 6773369-0 (Version None)
Quarter: 2010Q2

REPORT INFORMATION
  Report Type: 
  Country: None (occurrence: None)
  Receive Date: 20100614
  Receipt Date: 20100607
  Transmission Date: 20101027
  Serious: Yes (Hospitalization)
  Sender: FDA-Public Use
  Company Number: CL-124-2010

PATIENT
  Age: 19 Year
  Sex: Female

DRUGS (5)
  1. IBUPROFEN [Suspect]
     Indication: HEADACHE
  2. CIPROFLOXACIN [Suspect]
     Indication: URINARY TRACT INFECTION
     Dosage: ORAL ROUTE
     Route: 048
  3. CEFTRIAXONE [Suspect]
     Indication: URINARY TRACT INFECTION
  4. KETOROLAC UNK [Suspect]
     Indication: HEADACHE
  5. METOCLOPRAMIDE [Suspect]
     Indication: HEADACHE

REACTIONS (12)
  - BACTERIAL TEST POSITIVE [None]
  - BLOOD CREATINE INCREASED [None]
  - BLOOD UREA INCREASED [None]
  - HEART RATE INCREASED [None]
  - HEPATITIS CHOLESTATIC [None]
  - LYMPHOCYTE PERCENTAGE DECREASED [None]
  - NEUTROPHIL PERCENTAGE INCREASED [None]
  - NO THERAPEUTIC RESPONSE [None]
  - SEPSIS [None]
  - STEVENS-JOHNSON SYNDROME [None]
  - WHITE BLOOD CELL COUNT DECREASED [None]
  - WHITE BLOOD CELLS URINE POSITIVE [None]
